FAERS Safety Report 19145480 (Version 1)
Quarter: 2021Q2

REPORT INFORMATION
  Report Type: Spontaneous
  Country: GB (occurrence: GB)
  Receive Date: 20210416
  Receipt Date: 20210416
  Transmission Date: 20210717
  Serious: Yes (Other)
  Sender: FDA-Public Use
  Company Number: GB-MYLANLABS-2021M1022501

PATIENT
  Age: 8 Decade
  Sex: Female

DRUGS (13)
  1. LENVATINIB [Concomitant]
     Active Substance: LENVATINIB
     Dosage: 10 MILLIGRAM, QD
     Route: 048
  2. LENVATINIB [Concomitant]
     Active Substance: LENVATINIB
     Dosage: 14 MILLIGRAM, QD
     Route: 048
     Dates: start: 201801
  3. LENVATINIB [Concomitant]
     Active Substance: LENVATINIB
     Indication: THYROID CANCER METASTATIC
     Dosage: 24 MILLIGRAM, QD
     Route: 048
     Dates: start: 201708
  4. LENVATINIB [Concomitant]
     Active Substance: LENVATINIB
     Dosage: 20 MILLIGRAM, QD
     Route: 048
  5. LENVATINIB [Concomitant]
     Active Substance: LENVATINIB
     Dosage: 10 MILLIGRAM, QD
     Route: 048
     Dates: start: 2018
  6. DEXAMETHASONE. [Concomitant]
     Active Substance: DEXAMETHASONE
     Dosage: 8 MILLIGRAM, QD
     Route: 065
  7. BISOPROLOL [Suspect]
     Active Substance: BISOPROLOL
     Dosage: UNK
     Route: 065
  8. AMLODIPINE [Suspect]
     Active Substance: AMLODIPINE BESYLATE
     Indication: BLOOD PRESSURE INCREASED
     Dosage: UNK
     Route: 065
     Dates: start: 2017
  9. BISOPROLOL [Suspect]
     Active Substance: BISOPROLOL
     Indication: BLOOD PRESSURE INCREASED
     Dosage: UNK
     Route: 065
  10. DEXAMETHASONE. [Concomitant]
     Active Substance: DEXAMETHASONE
     Indication: PRODUCT USED FOR UNKNOWN INDICATION
     Dosage: 16 MILLIGRAM, QD
     Route: 065
     Dates: start: 2017
  11. LEVOTHYROXINE. [Concomitant]
     Active Substance: LEVOTHYROXINE
     Indication: THYROID CANCER METASTATIC
     Dosage: UNK
     Route: 065
  12. DEXAMETHASONE. [Concomitant]
     Active Substance: DEXAMETHASONE
     Dosage: 4 MILLIGRAM, QD
     Route: 065
  13. AMLODIPINE [Suspect]
     Active Substance: AMLODIPINE BESYLATE
     Dosage: 10 MILLIGRAM, QD
     Route: 065

REACTIONS (4)
  - Eastern Cooperative Oncology Group performance status worsened [Recovering/Resolving]
  - Metabolic disorder [Recovering/Resolving]
  - Oedema peripheral [Recovering/Resolving]
  - Quality of life decreased [Recovering/Resolving]

NARRATIVE: CASE EVENT DATE: 2018
